FAERS Safety Report 4491304-5 (Version None)
Quarter: 2004Q4

REPORT INFORMATION
  Report Type: 
  Country: None (occurrence: None)
  Receive Date: 20041101
  Receipt Date: 20041101
  Transmission Date: 20050328
  Serious: Yes (Disabling)
  Sender: FDA-Public Use
  Company Number: None

PATIENT
  Sex: Female
  Weight: 97.5234 kg

DRUGS (3)
  1. VIOXX [Suspect]
     Indication: ARTHRALGIA
     Dosage: ORAL
     Route: 048
     Dates: start: 20040210, end: 20040213
  2. VIOXX [Suspect]
     Indication: OSTEOARTHRITIS
     Dosage: ORAL
     Route: 048
     Dates: start: 20040210, end: 20040213
  3. UNNA BOOT THERAPY [Concomitant]

REACTIONS (5)
  - BLISTER [None]
  - CELLULITIS [None]
  - ERYTHEMA [None]
  - IMPAIRED WORK ABILITY [None]
  - OEDEMA PERIPHERAL [None]
